FAERS Safety Report 5298416-7 (Version None)
Quarter: 2007Q2

REPORT INFORMATION
  Report Type: 
  Country: None (occurrence: None)
  Receive Date: 20070416
  Receipt Date: 20070406
  Transmission Date: 20071010
  Serious: Yes (Death)
  Sender: FDA-Public Use
  Company Number: JP-PFIZER INC-2007028540

PATIENT
  Age: 75 Year
  Sex: Female

DRUGS (2)
  1. NORVASC [Suspect]
     Indication: HYPERTENSION
     Dosage: DAILY DOSE:5MG
     Route: 048
  2. ACTOS [Concomitant]
     Indication: HYPERGLYCAEMIA
     Dosage: DAILY DOSE:30MG
     Route: 048

REACTIONS (1)
  - SUDDEN DEATH [None]
